FAERS Safety Report 15699815 (Version 1)
Quarter: 2018Q4

REPORT INFORMATION
  Report Type: Spontaneous
  Country: US (occurrence: US)
  Receive Date: 20181207
  Receipt Date: 20181207
  Transmission Date: 20190205
  Serious: Yes (Other)
  Sender: FDA-Public Use
  Company Number: US-PFIZER INC-2018504557

PATIENT
  Age: 38 Year
  Sex: Female

DRUGS (1)
  1. GENOTROPIN MQ [Suspect]
     Active Substance: SOMATROPIN
     Indication: PRADER-WILLI SYNDROME
     Dosage: 1.4 MG, DAILY

REACTIONS (7)
  - Product use in unapproved indication [Unknown]
  - Blood urea nitrogen/creatinine ratio increased [Unknown]
  - Glycosylated haemoglobin increased [Unknown]
  - Urine albumin/creatinine ratio increased [Unknown]
  - Albumin urine present [Unknown]
  - Blood glucose increased [Unknown]
  - Blood creatinine decreased [Unknown]

NARRATIVE: CASE EVENT DATE: 20181015
